FAERS Safety Report 7940605-4 (Version None)
Quarter: 2011Q4

REPORT INFORMATION
  Report Type: 
  Country: None (occurrence: None)
  Receive Date: 20111128
  Receipt Date: 20111117
  Transmission Date: 20120403
  Serious: Yes (Other)
  Sender: FDA-Public Use
  Company Number: IL-JNJFOC-20111108676

PATIENT
  Sex: Male

DRUGS (2)
  1. REMICADE [Suspect]
     Indication: CROHN'S DISEASE
     Dosage: TREATMENT WITH REMICADE WAS RENEWED AND WAS ADMINISTERED TWO INFUSIONS
     Route: 042
  2. REMICADE [Suspect]
     Dosage: RECEIVED THREE YEARS AGO AND WAS ADMINISTERED THREE INFUSIONS
     Route: 042

REACTIONS (2)
  - ASTHMA [None]
  - ERYTHEMA [None]
